FAERS Safety Report 7342772-2 (Version None)
Quarter: 2011Q1

REPORT INFORMATION
  Report Type: 
  Country: None (occurrence: None)
  Receive Date: 20110310
  Receipt Date: 20100723
  Transmission Date: 20110831
  Serious: Yes (Hospitalization, Other)
  Sender: FDA-Public Use
  Company Number: US-BAYER-200935584NA

PATIENT
  Sex: Female
  Weight: 57.727 kg

DRUGS (4)
  1. ALLEGRA [Concomitant]
     Indication: MULTIPLE ALLERGIES
     Dates: start: 20060101, end: 20080101
  2. YAZ [Suspect]
     Indication: PREMENSTRUAL SYNDROME
     Route: 048
     Dates: start: 20070301, end: 20070501
  3. YASMIN [Suspect]
     Indication: PREMENSTRUAL SYNDROME
     Route: 048
     Dates: start: 20070501, end: 20071201
  4. RHINOCORT [Concomitant]
     Indication: MULTIPLE ALLERGIES
     Dates: start: 20060101, end: 20080101

REACTIONS (4)
  - PAIN [None]
  - BILIARY COLIC [None]
  - CHOLECYSTITIS [None]
  - ABDOMINAL PAIN UPPER [None]
